FAERS Safety Report 8445504-X (Version None)
Quarter: 2012Q2

REPORT INFORMATION
  Report Type: 
  Country: None (occurrence: None)
  Receive Date: 20120618
  Receipt Date: 20120608
  Transmission Date: 20120825
  Serious: Yes (Hospitalization)
  Sender: FDA-Public Use
  Company Number: US-JNJFOC-20120605782

PATIENT
  Sex: Female
  Weight: 54.89 kg

DRUGS (17)
  1. METHOTREXATE [Concomitant]
     Indication: ARTHRITIS
     Route: 048
  2. TYLENOL W/ CODEINE NO. 4 [Concomitant]
     Indication: PAIN
     Route: 048
  3. FOLIC ACID [Concomitant]
     Route: 048
     Dates: start: 20111201
  4. CELEBREX [Concomitant]
     Indication: ARTHRITIS
     Route: 048
  5. VITAMIN D [Concomitant]
     Route: 048
  6. CALCIUM [Concomitant]
     Route: 048
  7. PLAQUENIL [Concomitant]
     Indication: ARTHRITIS
     Route: 048
  8. ATENOLOL [Concomitant]
     Indication: BLOOD PRESSURE
     Route: 048
  9. PANTOPRAZOLE [Concomitant]
     Indication: DYSPEPSIA
     Route: 048
  10. PRAZOSIN [Concomitant]
     Indication: BLOOD PRESSURE
     Route: 048
  11. SIMVASTATIN [Concomitant]
     Indication: BLOOD CHOLESTEROL
     Route: 048
  12. REMICADE [Suspect]
     Route: 042
     Dates: start: 20060101, end: 20100101
  13. HYDROCHLOROTHIAZIDE [Concomitant]
     Indication: BLOOD PRESSURE
     Route: 048
  14. REMICADE [Suspect]
     Indication: RHEUMATOID ARTHRITIS
     Route: 042
     Dates: start: 20120604
  15. ACIDOPHILUS [Concomitant]
     Indication: GASTRIC DISORDER
     Route: 065
  16. PREDNISONE [Concomitant]
     Indication: ARTHRITIS
     Route: 048
     Dates: start: 19750101
  17. ENALAPRIL [Concomitant]
     Route: 048

REACTIONS (5)
  - HIP FRACTURE [None]
  - INFECTION [None]
  - RHEUMATOID ARTHRITIS [None]
  - FALL [None]
  - DRUG EFFECT DECREASED [None]
